FAERS Safety Report 19191529 (Version 1)
Quarter: 2021Q2

REPORT INFORMATION
  Report Type: Spontaneous
  Country: TN (occurrence: TN)
  Receive Date: 20210429
  Receipt Date: 20210429
  Transmission Date: 20210717
  Serious: No
  Sender: FDA-Public Use
  Company Number: TN-B.I. PHARMACEUTICALS,INC./RIDGEFIELD-2021-BI-099937

PATIENT
  Age: 40 Year
  Sex: Male
  Weight: 108 kg

DRUGS (1)
  1. JARDIANCE [Suspect]
     Active Substance: EMPAGLIFLOZIN
     Indication: TYPE 2 DIABETES MELLITUS
     Dates: start: 20200502, end: 20210420

REACTIONS (1)
  - Ketonuria [Unknown]

NARRATIVE: CASE EVENT DATE: 20210412
